FAERS Safety Report 8427525-6 (Version None)
Quarter: 2012Q2

REPORT INFORMATION
  Report Type: 
  Country: None (occurrence: None)
  Receive Date: 20120611
  Receipt Date: 20120530
  Transmission Date: 20120825
  Serious: No
  Sender: FDA-Public Use
  Company Number: US-ASTRAZENECA-2010SE61423

PATIENT
  Age: 52 Year
  Sex: Female

DRUGS (3)
  1. SEROQUEL [Suspect]
     Route: 048
     Dates: start: 20100401
  2. SEROQUEL [Suspect]
     Route: 048
  3. SEROQUEL [Suspect]
     Indication: BIPOLAR DISORDER
     Dosage: 100-200 MG
     Route: 048
     Dates: start: 20080101

REACTIONS (10)
  - NAUSEA [None]
  - CONDITION AGGRAVATED [None]
  - MALAISE [None]
  - ABDOMINAL PAIN UPPER [None]
  - INSOMNIA [None]
  - PANIC ATTACK [None]
  - ABDOMINAL DISCOMFORT [None]
  - HYPERSOMNIA [None]
  - DRUG DOSE OMISSION [None]
  - EMOTIONAL DISTRESS [None]
